FAERS Safety Report 19997401 (Version 3)
Quarter: 2022Q1

REPORT INFORMATION
  Report Type: Spontaneous
  Country: US (occurrence: US)
  Receive Date: 20211026
  Receipt Date: 20220301
  Transmission Date: 20220424
  Serious: Yes (Other)
  Sender: FDA-Public Use
  Company Number: US-PFIZER INC-202101393249

PATIENT
  Age: 69 Year
  Sex: Female
  Weight: 86.18 kg

DRUGS (3)
  1. IBRANCE [Suspect]
     Active Substance: PALBOCICLIB
     Indication: Bone cancer
     Dosage: THREE WEEKS AND OFF FOR ONE WEEK
  2. IBRANCE [Suspect]
     Active Substance: PALBOCICLIB
     Dosage: THREE WEEKS AND OFF FOR ONE WEEK
  3. IBRANCE [Suspect]
     Active Substance: PALBOCICLIB
     Dosage: 75 MG, CYCLIC (TAKES ONE EVERY DAY FOR THREE WEEKS AND THEN OFF FOR ONE WEEK)
     Dates: start: 20210607

REACTIONS (11)
  - Cellulitis [Recovered/Resolved]
  - Immunodeficiency [Unknown]
  - White blood cell count decreased [Recovered/Resolved]
  - Dyspnoea [Recovering/Resolving]
  - Weight fluctuation [Unknown]
  - Pain in extremity [Unknown]
  - Fatigue [Unknown]
  - Asthenia [Unknown]
  - Somnolence [Unknown]
  - Constipation [Unknown]
  - Off label use [Unknown]

NARRATIVE: CASE EVENT DATE: 20210101
